FAERS Safety Report 7190687-5 (Version None)
Quarter: 2010Q4

REPORT INFORMATION
  Report Type: 
  Country: None (occurrence: None)
  Receive Date: 20101221
  Receipt Date: 20101221
  Transmission Date: 20110411
  Serious: Yes (Hospitalization)
  Sender: FDA-Public Use
  Company Number: None

PATIENT
  Sex: Female
  Weight: 46 kg

DRUGS (6)
  1. SOLIRIS [Suspect]
     Indication: PROPHYLAXIS AGAINST TRANSPLANT REJECTION
     Dosage: 1200MG ONCE IV  ; 900MG  5 TIMES IV
     Route: 042
     Dates: start: 20100630
  2. SOLIRIS [Suspect]
     Indication: PROPHYLAXIS AGAINST TRANSPLANT REJECTION
     Dosage: 1200MG ONCE IV  ; 900MG  5 TIMES IV
     Route: 042
     Dates: start: 20100701
  3. SOLIRIS [Suspect]
     Indication: PROPHYLAXIS AGAINST TRANSPLANT REJECTION
     Dosage: 1200MG ONCE IV  ; 900MG  5 TIMES IV
     Route: 042
     Dates: start: 20100707
  4. SOLIRIS [Suspect]
     Indication: PROPHYLAXIS AGAINST TRANSPLANT REJECTION
     Dosage: 1200MG ONCE IV  ; 900MG  5 TIMES IV
     Route: 042
     Dates: start: 20100714
  5. SOLIRIS [Suspect]
     Indication: PROPHYLAXIS AGAINST TRANSPLANT REJECTION
     Dosage: 1200MG ONCE IV  ; 900MG  5 TIMES IV
     Route: 042
     Dates: start: 20100721
  6. SOLIRIS [Suspect]
     Indication: PROPHYLAXIS AGAINST TRANSPLANT REJECTION
     Dosage: 1200MG ONCE IV  ; 900MG  5 TIMES IV
     Route: 042
     Dates: start: 20100728

REACTIONS (4)
  - ACUTE MYOCARDIAL INFARCTION [None]
  - CORONARY ARTERY DISEASE [None]
  - CORONARY ARTERY DISSECTION [None]
  - LEFT VENTRICULAR DYSFUNCTION [None]
